FAERS Safety Report 7016673-3 (Version None)
Quarter: 2010Q3

REPORT INFORMATION
  Report Type: 
  Country: None (occurrence: None)
  Receive Date: 20100927
  Receipt Date: 20100922
  Transmission Date: 20110219
  Serious: Yes (Hospitalization, Other)
  Sender: FDA-Public Use
  Company Number: US-RB-015701-10

PATIENT
  Age: 66 Year
  Sex: Male

DRUGS (3)
  1. SUBOXONE [Suspect]
     Indication: DRUG DEPENDENCE
     Dosage: DOSING DETAILS UNKNOWN
     Route: 060
     Dates: start: 20080101, end: 20080101
  2. XANAX [Suspect]
     Indication: ANXIETY
     Route: 048
     Dates: end: 20080101
  3. PACIL [Suspect]
     Indication: DEPRESSION
     Route: 048
     Dates: end: 20080101

REACTIONS (3)
  - DELUSION [None]
  - MUSCLE TWITCHING [None]
  - PARAESTHESIA [None]
